FAERS Safety Report 7582742-2 (Version None)
Quarter: 2011Q2

REPORT INFORMATION
  Report Type: 
  Country: None (occurrence: None)
  Receive Date: 20110623
  Receipt Date: 20110617
  Transmission Date: 20111010
  Serious: Yes (Other)
  Sender: FDA-Public Use
  Company Number: NL-ACCORD-009561

PATIENT
  Age: 63 Year
  Sex: Male
  Weight: 68 kg

DRUGS (5)
  1. PANTOPRAZOL (PANTOPRAZOLE) [Concomitant]
  2. CARBASALATE (CARBASALATE) [Concomitant]
  3. OXAZEPAM [Concomitant]
  4. SIMVASTATIN [Suspect]
     Indication: HYPERCHOLESTEROLAEMIA
     Dosage: 40.000MG-1.00 TIMES PER-1.0DAYS
     Dates: start: 20091001
  5. BISOPROLOL FUMARATE [Concomitant]

REACTIONS (1)
  - GYNAECOMASTIA [None]
